FAERS Safety Report 4555678-9 (Version None)
Quarter: 2005Q1

REPORT INFORMATION
  Report Type: 
  Country: None (occurrence: None)
  Receive Date: 20050118
  Receipt Date: 20050112
  Transmission Date: 20050727
  Serious: Yes (Death)
  Sender: FDA-Public Use
  Company Number: OXCD20050001

PATIENT
  Age: 2 Year
  Sex: Female

DRUGS (1)
  1. OXYCODONE -SAME AS PRECOLONE UNKNOWN   UNKNOWN [Suspect]
     Dosage: PO
     Route: 048
     Dates: start: 20030101, end: 20030101

REACTIONS (21)
  - ABDOMINAL PAIN [None]
  - ACCIDENTAL EXPOSURE [None]
  - ANAL DILATATION [None]
  - BLOOD IMMUNOGLOBULIN E INCREASED [None]
  - BLOOD LEAD INCREASED [None]
  - BRAIN OEDEMA [None]
  - BRONCHITIS ACUTE [None]
  - BRONCHOPNEUMONIA [None]
  - CARDIO-RESPIRATORY ARREST [None]
  - CARDIOMEGALY [None]
  - COMA [None]
  - COORDINATION ABNORMAL [None]
  - DRUG TOXICITY [None]
  - EXCORIATION [None]
  - FATIGUE [None]
  - PRURITUS [None]
  - RESPIRATORY DEPRESSION [None]
  - SCRATCH [None]
  - THERAPY NON-RESPONDER [None]
  - VICTIM OF CHILD ABUSE [None]
  - VICTIM OF HOMICIDE [None]
